FAERS Safety Report 4512675-7 (Version None)
Quarter: 2004Q4

REPORT INFORMATION
  Report Type: 
  Country: None (occurrence: None)
  Receive Date: 20041012
  Receipt Date: 20040708
  Transmission Date: 20050328
  Serious: No
  Sender: FDA-Public Use
  Company Number: A03200402246

PATIENT
  Age: 79 Year
  Sex: Male

DRUGS (5)
  1. ALFUZOSIN HYDROCHLORIDE - TABLET PR - 10 MG [Suspect]
     Indication: POLLAKIURIA
     Dosage: 10 MG OD - ORAL
     Route: 048
     Dates: start: 20040707
  2. METOPROLOL SUCCINATE [Concomitant]
  3. TELMISARTAN [Concomitant]
  4. NISOLDIPINE [Concomitant]
  5. LOPERAMIDE HYDROCHLORIDE [Concomitant]

REACTIONS (5)
  - BLOOD PRESSURE INCREASED [None]
  - DRUG INEFFECTIVE [None]
  - DYSPNOEA [None]
  - HEART RATE INCREASED [None]
  - VISION BLURRED [None]
